FAERS Safety Report 6136191-4 (Version None)
Quarter: 2009Q1

REPORT INFORMATION
  Report Type: 
  Country: None (occurrence: None)
  Receive Date: 20090330
  Receipt Date: 20090226
  Transmission Date: 20090719
  Serious: No
  Sender: FDA-Public Use
  Company Number: US-BAYER-200914442NA

PATIENT
  Age: 17 Year
  Sex: Female
  Weight: 62 kg

DRUGS (1)
  1. YAZ [Suspect]
     Indication: PREMENSTRUAL SYNDROME
     Route: 048
     Dates: start: 20080801

REACTIONS (6)
  - BREAST DISORDER [None]
  - BREAST MASS [None]
  - DIZZINESS [None]
  - FOOD CRAVING [None]
  - HEADACHE [None]
  - PHOTOPHOBIA [None]
